FAERS Safety Report 14095736 (Version 2)
Quarter: 2017Q4

REPORT INFORMATION
  Report Type: Report from Study
  Country: None (occurrence: CA)
  Receive Date: 20171017
  Receipt Date: 20171123
  Transmission Date: 20180321
  Serious: Yes (Hospitalization, Other)
  Sender: FDA-Public Use
  Company Number: CA-ABBVIE-17K-028-2118968-00

PATIENT
  Sex: Female

DRUGS (3)
  1. HUMIRA [Suspect]
     Active Substance: ADALIMUMAB
     Dosage: INDUCTION DOSE
     Route: 058
     Dates: start: 20171109, end: 20171109
  2. HUMIRA [Suspect]
     Active Substance: ADALIMUMAB
     Indication: CROHN^S DISEASE
     Route: 058
     Dates: start: 20120214, end: 201710
  3. SYNTHROID [Concomitant]
     Active Substance: LEVOTHYROXINE SODIUM
     Indication: PRODUCT USED FOR UNKNOWN INDICATION
     Route: 048

REACTIONS (32)
  - Abscess drainage [Unknown]
  - Cholecystectomy [Unknown]
  - Anal fistula [Not Recovered/Not Resolved]
  - Gastrointestinal oedema [Not Recovered/Not Resolved]
  - Ileal ulcer [Unknown]
  - Hypophagia [Unknown]
  - Anal fissure [Unknown]
  - Surgery [Unknown]
  - Stomach mass [Not Recovered/Not Resolved]
  - Rectal ulcer [Unknown]
  - Dyschezia [Not Recovered/Not Resolved]
  - Proctalgia [Not Recovered/Not Resolved]
  - Gastrointestinal ulcer perforation [Not Recovered/Not Resolved]
  - Helicobacter gastritis [Unknown]
  - Gastritis [Not Recovered/Not Resolved]
  - Renal cyst [Not Recovered/Not Resolved]
  - Blood potassium decreased [Unknown]
  - Gastric ulcer [Not Recovered/Not Resolved]
  - Gastrointestinal wall thickening [Not Recovered/Not Resolved]
  - Crohn^s disease [Unknown]
  - Hypotension [Unknown]
  - Vomiting [Unknown]
  - Mobility decreased [Not Recovered/Not Resolved]
  - Crohn^s disease [Not Recovered/Not Resolved]
  - Hepatic steatosis [Not Recovered/Not Resolved]
  - Anal incontinence [Not Recovered/Not Resolved]
  - Intestinal anastomosis [Unknown]
  - Nausea [Unknown]
  - Anal fistula [Unknown]
  - Abnormal loss of weight [Not Recovered/Not Resolved]
  - Diarrhoea [Unknown]
  - Duodenitis [Not Recovered/Not Resolved]

NARRATIVE: CASE EVENT DATE: 2017
